FAERS Safety Report 10640713 (Version 1)
Quarter: 2014Q4

REPORT INFORMATION
  Report Type: Spontaneous
  Country: US (occurrence: None)
  Receive Date: 20141208
  Receipt Date: 20141208
  Transmission Date: 20150529
  Serious: Yes (Disabling)
  Sender: FDA-Public Use
  Company Number: None

PATIENT
  Age: 67 Year
  Sex: Male
  Weight: 90.72 kg

DRUGS (1)
  1. SPIRONOLACTONE. [Suspect]
     Active Substance: SPIRONOLACTONE
     Indication: BLOOD PRESSURE
     Dosage: 25MGX2 TWICE DAILY
     Route: 048
     Dates: start: 20141001, end: 20141207

REACTIONS (1)
  - Breast pain [None]

NARRATIVE: CASE EVENT DATE: 20141101
